FAERS Safety Report 15233229 (Version 1)
Quarter: 2018Q3

REPORT INFORMATION
  Report Type: Spontaneous
  Country: AE (occurrence: AE)
  Receive Date: 20180802
  Receipt Date: 20180802
  Transmission Date: 20181010
  Serious: Yes (Hospitalization, Other)
  Sender: FDA-Public Use
  Company Number: AE-JNJFOC-20180734094

PATIENT
  Sex: Female

DRUGS (2)
  1. CLINDAMYCIN. [Suspect]
     Active Substance: CLINDAMYCIN
     Indication: INFECTION
     Route: 065
  2. REMICADE [Suspect]
     Active Substance: INFLIXIMAB
     Indication: COLITIS ULCERATIVE
     Dosage: 13 YEARS AGO
     Route: 042
     Dates: start: 2005

REACTIONS (10)
  - Nodule [Not Recovered/Not Resolved]
  - Osteomyelitis [Recovered/Resolved]
  - Colitis ulcerative [Recovered/Resolved]
  - Arthralgia [Recovered/Resolved]
  - Drug effect decreased [Not Recovered/Not Resolved]
  - Knee arthroplasty [Recovered/Resolved]
  - Device dislocation [Recovered/Resolved]
  - Eczema [Not Recovered/Not Resolved]
  - Clostridium difficile infection [Recovered/Resolved]
  - Blood pressure decreased [Not Recovered/Not Resolved]

NARRATIVE: CASE EVENT DATE: 2009
